FAERS Safety Report 24099408 (Version 1)
Quarter: 2024Q3

REPORT INFORMATION
  Report Type: Spontaneous
  Country: US (occurrence: US)
  Receive Date: 20240716
  Receipt Date: 20240716
  Transmission Date: 20241017
  Serious: No
  Sender: NOVO NORDISK
  Company Number: US-NOVOPROD-1174650

PATIENT
  Age: 26 Year
  Sex: Female

DRUGS (1)
  1. OZEMPIC [Suspect]
     Active Substance: SEMAGLUTIDE
     Indication: Weight control
     Dosage: UNK
     Route: 058

REACTIONS (4)
  - Nasopharyngitis [Unknown]
  - Pyrexia [Unknown]
  - Urticaria [Unknown]
  - Product use in unapproved indication [Unknown]
